FAERS Safety Report 19126257 (Version 2)
Quarter: 2021Q2

REPORT INFORMATION
  Report Type: Spontaneous
  Country: ES (occurrence: ES)
  Receive Date: 20210413
  Receipt Date: 20210414
  Transmission Date: 20210717
  Serious: Yes (Hospitalization, Other)
  Sender: FDA-Public Use
  Company Number: ES-PFIZER INC-2021347085

PATIENT

DRUGS (1)
  1. RITUXIMAB. [Suspect]
     Active Substance: RITUXIMAB
     Indication: RHEUMATIC DISORDER
     Dosage: UNK

REACTIONS (4)
  - Off label use [Unknown]
  - Respiratory failure [Unknown]
  - COVID-19 [Unknown]
  - COVID-19 pneumonia [Unknown]
